FAERS Safety Report 10731947 (Version 1)
Quarter: 2015Q1

REPORT INFORMATION
  Report Type: Spontaneous
  Country: BE (occurrence: None)
  Receive Date: 20150120
  Receipt Date: 20150120
  Transmission Date: 20150721
  Serious: Yes (Death)
  Sender: FDA-Public Use
  Company Number: 2014FE03198

PATIENT
  Age: 75 Year
  Sex: Male
  Weight: 70 kg

DRUGS (2)
  1. PANTOMED (DEXPANTHENOL) [Concomitant]
  2. FIRMAGON [Suspect]
     Active Substance: DEGARELIX ACETATE
     Indication: PROSTATE CANCER
     Dates: start: 20120318

REACTIONS (3)
  - Pancreatitis acute [None]
  - Abdominal compartment syndrome [None]
  - Pancreatitis necrotising [None]

NARRATIVE: CASE EVENT DATE: 20120418
